FAERS Safety Report 4523715-3 (Version None)
Quarter: 2004Q4

REPORT INFORMATION
  Report Type: 
  Country: None (occurrence: None)
  Receive Date: 20041210
  Receipt Date: 20041201
  Transmission Date: 20050328
  Serious: Yes (Other)
  Sender: FDA-Public Use
  Company Number: 386483

PATIENT
  Age: 57 Year
  Sex: Male

DRUGS (1)
  1. DILATREND [Suspect]
     Indication: DRUG USE FOR UNKNOWN INDICATION
     Dosage: 3.125MG PER DAY
     Route: 065
     Dates: start: 20041112

REACTIONS (3)
  - DIARRHOEA [None]
  - LETHARGY [None]
  - SILENT MYOCARDIAL INFARCTION [None]
